FAERS Safety Report 9998034 (Version 1)
Quarter: 2014Q1

REPORT INFORMATION
  Report Type: Spontaneous
  Country: US (occurrence: None)
  Receive Date: 20140224
  Receipt Date: 20140224
  Transmission Date: 20141002
  Serious: Yes (Hospitalization)
  Sender: FDA-Public Use
  Company Number: PHEH2013US006608

PATIENT
  Age: 3 Year
  Sex: Male

DRUGS (1)
  1. TOBI [Suspect]
     Dosage: 300 MG, BID (300 MG/ 5 ML), INHALATION
     Route: 055

REACTIONS (2)
  - Pyrexia [None]
  - Cough [None]
